FAERS Safety Report 24923252 (Version 1)
Quarter: 2025Q1

REPORT INFORMATION
  Report Type: Spontaneous
  Country: US (occurrence: US)
  Receive Date: 20250204
  Receipt Date: 20250204
  Transmission Date: 20250408
  Serious: No
  Sender: SANOFI AVENTIS
  Company Number: US-SA-2025SA029882

PATIENT
  Sex: Female
  Weight: 71.24 kg

DRUGS (7)
  1. DUPIXENT [Suspect]
     Active Substance: DUPILUMAB
     Indication: Dermatitis atopic
     Dosage: 300 MG, QOW
     Route: 058
  2. IRON [Suspect]
     Active Substance: IRON
  3. NEXPLANON [Suspect]
     Active Substance: ETONOGESTREL
  4. TACROLIMUS [Concomitant]
     Active Substance: TACROLIMUS
  5. TRIAMCINOLONE ACETONIDE [Concomitant]
     Active Substance: TRIAMCINOLONE ACETONIDE
  6. FERROUS SULFATE [Concomitant]
     Active Substance: FERROUS SULFATE
  7. CEFDINIR [Concomitant]
     Active Substance: CEFDINIR

REACTIONS (4)
  - Nausea [Unknown]
  - Vomiting [Unknown]
  - Anaemia [Unknown]
  - Heavy menstrual bleeding [Unknown]
